FAERS Safety Report 6065589-8 (Version None)
Quarter: 2009Q1

REPORT INFORMATION
  Report Type: 
  Country: None (occurrence: None)
  Receive Date: 20090204
  Receipt Date: 20090202
  Transmission Date: 20090719
  Serious: No
  Sender: FDA-Public Use
  Company Number: US-B.I. PHARMACEUTICALS,INC./RIDGEFIELD-2009-BP-00018BP

PATIENT
  Sex: Female

DRUGS (4)
  1. COMBIVENT [Suspect]
     Indication: ASTHMA
     Dosage: 12PUF
     Route: 055
     Dates: start: 20080801
  2. CELEXA [Concomitant]
  3. METOPROLOL TARTRATE [Concomitant]
  4. LASIX [Concomitant]

REACTIONS (1)
  - DYSGEUSIA [None]
